FAERS Safety Report 23147353 (Version 1)
Quarter: 2023Q4

REPORT INFORMATION
  Report Type: Spontaneous
  Country: BR (occurrence: BR)
  Receive Date: 20231106
  Receipt Date: 20231106
  Transmission Date: 20240110
  Serious: Yes (Other)
  Sender: FDA-Public Use
  Company Number: BR-ADVANZ PHARMA-202310009985

PATIENT

DRUGS (1)
  1. TRANYLCYPROMINE [Suspect]
     Active Substance: TRANYLCYPROMINE
     Indication: Product used for unknown indication
     Dosage: 10 MG (PARNATE W/20 CC)
     Route: 065

REACTIONS (2)
  - Suicide attempt [Unknown]
  - Product availability issue [Unknown]
